FAERS Safety Report 12990414 (Version 1)
Quarter: 2016Q4

REPORT INFORMATION
  Report Type: Spontaneous
  Country: BR (occurrence: BR)
  Receive Date: 20161201
  Receipt Date: 20161201
  Transmission Date: 20170207
  Serious: Yes (Other)
  Sender: FDA-Public Use
  Company Number: BR-TEVA-714463ROM

PATIENT

DRUGS (1)
  1. TEVAIRINOT [Suspect]
     Active Substance: IRINOTECAN HYDROCHLORIDE

REACTIONS (4)
  - Mucosal inflammation [Unknown]
  - Intestinal haemorrhage [Unknown]
  - Neutropenia [Unknown]
  - Malaise [Unknown]
